FAERS Safety Report 5563021-1 (Version None)
Quarter: 2007Q4

REPORT INFORMATION
  Report Type: 
  Country: None (occurrence: None)
  Receive Date: 20071217
  Receipt Date: 20071205
  Transmission Date: 20080405
  Serious: Yes (Other)
  Sender: FDA-Public Use
  Company Number: JP-ROCHE-536073

PATIENT
  Age: 28 Year
  Sex: Female

DRUGS (10)
  1. CELLCEPT [Suspect]
     Dosage: 14 DAYS PRIOR OPERATION. DOSING REGIMEN REPORTED AS: 1000 MG/BODY/DAY.
     Route: 065
     Dates: start: 20070305
  2. CELLCEPT [Suspect]
     Dosage: ON HOSPITAL DAY ONE. DOSING REGIMEN REPORTED AS: 2000 MG/BODY/DAY.
     Route: 065
     Dates: start: 20070301
  3. SOLU-MEDROL [Concomitant]
     Dosage: DRUG REPORTED AS SOL MEDROL. DOSAGE REPORTED AS: 500 MG, 250 MG,125 MG/BODY/DAY.
  4. TACROLIMUS [Concomitant]
     Dosage: 14 DAYS PRIOR OPERATION.  DRUG NAME REPORTED AS FK. GIVEN INTRAVENIOUSLY.
     Route: 050
     Dates: start: 20070305
  5. TACROLIMUS [Concomitant]
     Dosage: GIVEN ORALLY.
     Route: 050
     Dates: start: 20070315
  6. TACROLIMUS [Concomitant]
     Dosage: HOSPITAL DAY ONE.
     Route: 050
  7. GUSPERIMUS [Concomitant]
     Dosage: DRUG REPORTED AS DSG. GIVEN ON DAY ONE OF OPERATION. DOSAGE REPORTED AS: 100 MG/BODY/DAY.
  8. PGE 1 [Concomitant]
     Dosage: DOSAGE REPORTED AS: 500 MICROG/BODY/DAY. GIVEN ON DAY OF OPERATION.
  9. PGE 1 [Concomitant]
     Dosage: DOSAGE REPORTED AS: 60 MICROG/BODY/DAY. HOSPITAL DAY ONE.
  10. FOY [Concomitant]
     Dosage: DOSAGE REPORTED AS: 2000 MG/BODY/DAY. DAY OF OPERATION.

REACTIONS (3)
  - HAEMOLYTIC ANAEMIA [None]
  - HAEMOLYTIC URAEMIC SYNDROME [None]
  - THROMBOTIC THROMBOCYTOPENIC PURPURA [None]
